FAERS Safety Report 18623224 (Version 1)
Quarter: 2020Q4

REPORT INFORMATION
  Report Type: Other
  Country: MX (occurrence: MX)
  Receive Date: 20201216
  Receipt Date: 20201216
  Transmission Date: 20210114
  Serious: Yes (Disabling, Other)
  Sender: FDA-Public Use
  Company Number: MX-ROCHE-2734018

PATIENT
  Age: 36 Year
  Sex: Female

DRUGS (6)
  1. OCREVUS [Suspect]
     Active Substance: OCRELIZUMAB
     Indication: SECONDARY PROGRESSIVE MULTIPLE SCLEROSIS
     Route: 042
     Dates: start: 201906
  2. DOLAC [KETOROLAC TROMETHAMINE] [Concomitant]
     Indication: PAIN
     Dosage: IN CASE OF SEVERE PAIN
  3. ANAPSIQUE [Concomitant]
     Active Substance: AMITRIPTYLINE HYDROCHLORIDE
  4. METHYLPREDNISOLONE. [Concomitant]
     Active Substance: METHYLPREDNISOLONE
  5. AMITRIPTYLINE [Concomitant]
     Active Substance: AMITRIPTYLINE
     Dosage: AT NIGHT WITHOUT STOPPING
  6. BOTULINUM TOXIN [Concomitant]
     Active Substance: BOTULINUM TOXIN NOS

REACTIONS (10)
  - Muscle spasticity [Unknown]
  - Hypotension [Unknown]
  - Paraparesis [Unknown]
  - Headache [Unknown]
  - Dysaesthesia [Unknown]
  - Tachycardia [Unknown]
  - Magnetic resonance imaging abnormal [Unknown]
  - Relapsing multiple sclerosis [Unknown]
  - Gait disturbance [Unknown]
  - Asthenia [Unknown]

NARRATIVE: CASE EVENT DATE: 201907
